FAERS Safety Report 16739570 (Version 1)
Quarter: 2019Q3

REPORT INFORMATION
  Report Type: Spontaneous
  Country: FR (occurrence: FR)
  Receive Date: 20190826
  Receipt Date: 20190826
  Transmission Date: 20191005
  Serious: Yes (Other)
  Sender: FDA-Public Use
  Company Number: FR-SUN PHARMACEUTICAL INDUSTRIES LTD-2019RR-218707

PATIENT
  Age: 92 Year
  Sex: Male

DRUGS (9)
  1. BETAHISTINE [Suspect]
     Active Substance: BETAHISTINE
     Indication: VERTIGO
     Dosage: 2 DOSAGE FORM, DAILY
     Route: 048
     Dates: start: 20190103
  2. CETIRIZINE [Suspect]
     Active Substance: CETIRIZINE HYDROCHLORIDE
     Indication: ECZEMA
     Dosage: 10 MILLIGRAM, DAILY
     Route: 048
     Dates: start: 20190721
  3. EUPHYTOSE, COMPRIME ENROBE [Suspect]
     Active Substance: HERBALS
     Indication: ANXIETY
     Dosage: 2 DOSAGE FORM, DAILY
     Route: 048
     Dates: start: 20180324
  4. INDAPAMIDE. [Suspect]
     Active Substance: INDAPAMIDE
     Indication: HYPERTENSION
     Dosage: 0.63 MILLIGRAM, DAILY
     Route: 048
     Dates: start: 20180324
  5. IKOREL 20 MG, COMPRIME [Suspect]
     Active Substance: NICORANDIL
     Indication: CORONARY ARTERY INSUFFICIENCY
     Dosage: 2 DOSAGE FORM, DAILY
     Route: 048
     Dates: start: 20180324
  6. PERINDOPRIL [Suspect]
     Active Substance: PERINDOPRIL
     Indication: HYPERTENSION
     Dosage: 2 MILLIGRAM, DAILY
     Route: 048
     Dates: start: 20180324
  7. KARDEGIC [Suspect]
     Active Substance: ASPIRIN DL-LYSINE
     Indication: CARDIOVASCULAR EVENT PROPHYLAXIS
     Dosage: 1 DOSAGE FORM, DAILY
     Route: 048
     Dates: start: 20190324
  8. MOVICOL [Suspect]
     Active Substance: POLYETHYLENE GLYCOL 3350\POTASSIUM CHLORIDE\SODIUM BICARBONATE\SODIUM CHLORIDE
     Indication: CONSTIPATION
     Dosage: 1 DOSAGE FORM, DAILY
     Route: 048
     Dates: start: 20180915
  9. TADENAN 50 MG, CAPSULE MOLLE [Suspect]
     Active Substance: PYGEUM
     Indication: BENIGN PROSTATIC HYPERPLASIA
     Dosage: 100 MILLIGRAM, DAILY
     Route: 048
     Dates: start: 20180324

REACTIONS (1)
  - Photosensitivity reaction [Not Recovered/Not Resolved]

NARRATIVE: CASE EVENT DATE: 201906
